FAERS Safety Report 6895730-6 (Version None)
Quarter: 2010Q3

REPORT INFORMATION
  Report Type: 
  Country: None (occurrence: None)
  Receive Date: 20100728
  Receipt Date: 20100720
  Transmission Date: 20110219
  Serious: Yes (Death)
  Sender: FDA-Public Use
  Company Number: 2010S1000663

PATIENT
  Age: 47 Year
  Sex: Female
  Weight: 77 kg

DRUGS (8)
  1. LIVALO [Suspect]
     Indication: DYSLIPIDAEMIA
     Dosage: 2 MG; 1X; PO
     Route: 048
     Dates: start: 20100712, end: 20100714
  2. GLIPIZIDE [Concomitant]
  3. METFORMIN [Concomitant]
  4. DIAZEPAM [Concomitant]
  5. HYDROMORPHONE [Concomitant]
  6. HYDROCHLORIDE [Concomitant]
  7. LORCET-HD [Concomitant]
  8. PHENERGAN [Concomitant]

REACTIONS (1)
  - MYOCARDIAL INFARCTION [None]
